FAERS Safety Report 4758447-X (Version None)
Quarter: 2005Q3

REPORT INFORMATION
  Report Type: 
  Country: None (occurrence: None)
  Receive Date: 20050901
  Receipt Date: 20050823
  Transmission Date: 20060218
  Serious: Yes (Hospitalization)
  Sender: FDA-Public Use
  Company Number: US-BOEHRINGER INGELHEIM PHARMACEUTICALS, INC.-2005-BP-14695BP

PATIENT
  Age: 54 Year
  Sex: Male

DRUGS (8)
  1. FLOMAX [Suspect]
     Route: 048
     Dates: start: 20050810
  2. DEXAMETHASONE [Concomitant]
  3. XANAX [Concomitant]
  4. PHENYTOIN [Concomitant]
  5. LOVENOX [Concomitant]
  6. ZYVOX [Concomitant]
  7. LEVAQUIN [Concomitant]
  8. DIFLUCAN [Concomitant]

REACTIONS (3)
  - BLOOD BILIRUBIN INCREASED [None]
  - CELLULITIS [None]
  - JAUNDICE [None]
